FAERS Safety Report 9818786 (Version 1)
Quarter: 2014Q1

REPORT INFORMATION
  Report Type: Spontaneous
  Country: US (occurrence: US)
  Receive Date: 20140115
  Receipt Date: 20140115
  Transmission Date: 20141002
  Serious: No
  Sender: FDA-Public Use
  Company Number: US-009507513-1401USA005432

PATIENT
  Sex: Male

DRUGS (3)
  1. JANUVIA [Suspect]
     Route: 048
  2. GLIPIZIDE [Concomitant]
  3. METFORMIN [Concomitant]

REACTIONS (2)
  - Blood glucose increased [Unknown]
  - Circumstance or information capable of leading to medication error [Unknown]
